FAERS Safety Report 16643557 (Version 1)
Quarter: 2019Q3

REPORT INFORMATION
  Report Type: Spontaneous
  Country: US (occurrence: US)
  Receive Date: 20190729
  Receipt Date: 20190729
  Transmission Date: 20191004
  Serious: No
  Sender: FDA-Public Use
  Company Number: US-PRINSTON PHARMACEUTICAL INC.-2018PRN01343

PATIENT
  Sex: Male
  Weight: 71.66 kg

DRUGS (4)
  1. ASPIRIN. [Concomitant]
     Active Substance: ASPIRIN
     Dosage: 81 MG, 1X/DAY
  2. LISINOPRIL. [Suspect]
     Active Substance: LISINOPRIL
     Indication: HYPERTENSION
     Dosage: 10 MG, 1X/DAY
     Route: 048
     Dates: start: 20180905, end: 2018
  3. LISINOPRIL. [Suspect]
     Active Substance: LISINOPRIL
     Dosage: 20 MG, 1X/DAY
     Dates: start: 2018
  4. SIMVASTATIN. [Concomitant]
     Active Substance: SIMVASTATIN
     Dosage: 10 MG, 1X/DAY

REACTIONS (3)
  - Blood pressure systolic increased [Unknown]
  - Product substitution issue [Unknown]
  - Drug ineffective [Unknown]
